FAERS Safety Report 8775911 (Version 1)
Quarter: 2012Q4

REPORT INFORMATION
  Report Type: 
  Country: FR (occurrence: FR)
  Receive Date: 20120910
  Receipt Date: 20120910
  Transmission Date: 20130627
  Serious: Yes (Death, Hospitalization, Other)
  Sender: FDA-Public Use
  Company Number: FR-BRISTOL-MYERS SQUIBB COMPANY-16919334

PATIENT
  Age: 78 Year
  Sex: Male

DRUGS (8)
  1. MANTADIX CAPS 100 MG [Suspect]
     Indication: PARKINSON^S DISEASE
     Route: 048
  2. SINEMET [Suspect]
     Indication: PARKINSON^S DISEASE
     Route: 048
  3. VEMURAFENIB [Suspect]
     Indication: PARKINSON^S DISEASE
     Dosage: Tab. 3tab on morning and 3 in evening
     Route: 048
     Dates: start: 201202, end: 20120302
  4. MODOPAR [Suspect]
     Indication: PARKINSON^S DISEASE
     Dosage: 1DF: 250 Units NOS (levodopa 200 mg, benserazide 50 mg) tablet
     Route: 048
  5. REQUIP [Suspect]
     Indication: PARKINSON^S DISEASE
     Dosage: Requip LP
     Route: 048
  6. MACROGOL [Suspect]
  7. COMTAN [Suspect]
  8. FLUTAMIDE [Suspect]

REACTIONS (5)
  - Sudden death [Fatal]
  - Confusional state [Unknown]
  - Extrapyramidal disorder [Unknown]
  - Renal failure acute [Unknown]
  - Anaemia [Unknown]
